FAERS Safety Report 7909372-4 (Version None)
Quarter: 2011Q4

REPORT INFORMATION
  Report Type: 
  Country: None (occurrence: None)
  Receive Date: 20111111
  Receipt Date: 20111025
  Transmission Date: 20120403
  Serious: Yes (Hospitalization)
  Sender: FDA-Public Use
  Company Number: JP-ELI_LILLY_AND_COMPANY-JP201111000360

PATIENT
  Age: 35 Year
  Sex: Male

DRUGS (3)
  1. CYMBALTA [Suspect]
     Indication: DEPRESSION
     Dosage: 40 MG, QD
     Route: 048
     Dates: start: 20110401, end: 20110401
  2. PAXIL [Concomitant]
     Indication: DEPRESSION
     Dosage: UNK
     Route: 048
     Dates: start: 20110301
  3. CYMBALTA [Suspect]
     Dosage: UNK
     Route: 048
     Dates: start: 20110401, end: 20110101

REACTIONS (2)
  - BLOOD CREATININE INCREASED [None]
  - INTENTIONAL OVERDOSE [None]
